FAERS Safety Report 26179278 (Version 1)
Quarter: 2025Q4

REPORT INFORMATION
  Report Type: Spontaneous
  Country: US (occurrence: US)
  Receive Date: 20251219
  Receipt Date: 20251219
  Transmission Date: 20260118
  Serious: Yes (Hospitalization, Other)
  Sender: ACCORD
  Company Number: US-Accord-518139

PATIENT
  Age: 70 Year
  Sex: Male
  Weight: 110.0 kg

DRUGS (13)
  1. CISPLATIN [Suspect]
     Active Substance: CISPLATIN
     Indication: Non-small cell lung cancer
     Dosage: 177 MG/M2, Q3WEEKS, INTRAVENOUS USE
     Route: 042
     Dates: start: 20250814, end: 20250814
  2. PEMETREXED [Suspect]
     Active Substance: PEMETREXED
     Indication: Non-small cell lung cancer
     Dosage: 1180 MG/M2, Q3WEEKS, INTRAVENOUS USE
     Route: 042
     Dates: start: 20250814, end: 20250814
  3. PEMBROLIZUMAB [Concomitant]
     Active Substance: PEMBROLIZUMAB
     Indication: Non-small cell lung cancer
     Dosage: 200 MG, Q3WEEKS, IV USE
     Route: 042
     Dates: start: 20250814, end: 20250814
  4. ZOFRAN [Concomitant]
     Active Substance: ONDANSETRON HYDROCHLORIDE
     Dates: start: 20250818
  5. SANCUSO [Concomitant]
     Active Substance: GRANISETRON
     Dates: start: 20251009
  6. COLACE [Concomitant]
     Active Substance: DOCUSATE SODIUM
     Dates: start: 20251016
  7. BENZONATATE [Concomitant]
     Active Substance: BENZONATATE
     Dates: start: 20251016
  8. ALLEGRA [Concomitant]
     Active Substance: FEXOFENADINE HYDROCHLORIDE
     Dates: start: 20250821
  9. ADVAIR HFA [Concomitant]
     Active Substance: FLUTICASONE PROPIONATE\SALMETEROL XINAFOATE
     Dates: start: 20250821
  10. ACETAMINOPHEN [Concomitant]
     Active Substance: ACETAMINOPHEN
     Dates: start: 202102
  11. CISPLATIN [Suspect]
     Active Substance: CISPLATIN
     Indication: Non-small cell lung cancer
     Dosage: 177 MG/M2, Q3WEEKS, INTRAVENOUS USE
     Route: 042
     Dates: start: 20251016, end: 20251016
  12. PEMBROLIZUMAB [Concomitant]
     Active Substance: PEMBROLIZUMAB
     Indication: Non-small cell lung cancer
     Dosage: 200 MG, Q3WEEKS, IV USE
     Route: 042
     Dates: start: 20251106, end: 20251106
  13. PEMETREXED [Suspect]
     Active Substance: PEMETREXED
     Indication: Non-small cell lung cancer
     Dosage: 1180 MG/M2, Q3WEEKS, INTRAVENOUS USE
     Route: 042
     Dates: start: 20251106, end: 20251106

REACTIONS (1)
  - Anaemia [Recovered/Resolved]

NARRATIVE: CASE EVENT DATE: 20251122
